FAERS Safety Report 4635577-4 (Version None)
Quarter: 2005Q2

REPORT INFORMATION
  Report Type: 
  Country: None (occurrence: None)
  Receive Date: 20050413
  Receipt Date: 20050401
  Transmission Date: 20051028
  Serious: Yes (Hospitalization, Other)
  Sender: FDA-Public Use
  Company Number: KII-2005-0015825

PATIENT
  Age: 52 Year
  Sex: Male

DRUGS (4)
  1. OXYCODONE HCL [Suspect]
     Indication: PAIN
     Dosage: SEE TEXT, ORAL
     Route: 048
  2. MORPHINE SULFATE [Suspect]
     Indication: PAIN
     Dosage: SEE TEXT, ORAL
     Route: 048
  3. TRAZODONE HCL [Suspect]
     Indication: PAIN
     Dosage: SEE TEXT, ORAL
     Route: 048
  4. LORAZEPAM [Suspect]
     Dosage: SEE TEXT, ORAL
     Route: 048

REACTIONS (12)
  - BLOOD UREA INCREASED [None]
  - BODY TEMPERATURE INCREASED [None]
  - DUODENAL ULCER [None]
  - GAIT DISTURBANCE [None]
  - GASTROINTESTINAL HAEMORRHAGE [None]
  - HAEMATEMESIS [None]
  - HAEMOGLOBIN DECREASED [None]
  - LETHARGY [None]
  - MULTIPLE DRUG OVERDOSE [None]
  - SOMNOLENCE [None]
  - TACHYCARDIA [None]
  - WHITE BLOOD CELL COUNT INCREASED [None]
